FAERS Safety Report 7325795-9 (Version None)
Quarter: 2011Q1

REPORT INFORMATION
  Report Type: 
  Country: None (occurrence: None)
  Receive Date: 20110302
  Receipt Date: 20101109
  Transmission Date: 20110831
  Serious: Yes (Hospitalization, Other)
  Sender: FDA-Public Use
  Company Number: US-BAYER-2011-000540

PATIENT
  Sex: Female
  Weight: 73 kg

DRUGS (4)
  1. FISH OIL [Concomitant]
     Indication: PRODUCT USED FOR UNKNOWN INDICATION
  2. YASMIN [Suspect]
  3. YASMIN [Suspect]
     Indication: PRODUCT USED FOR UNKNOWN INDICATION
     Dosage: UNK
     Dates: start: 20051001, end: 20080801
  4. METFORMIN [Concomitant]
     Indication: POLYCYSTIC OVARIES

REACTIONS (6)
  - CHOLECYSTITIS CHRONIC [None]
  - CHOLELITHIASIS [None]
  - MUCOSAL NECROSIS [None]
  - VOMITING [None]
  - CHOLECYSTITIS INFECTIVE [None]
  - ABDOMINAL PAIN [None]
